FAERS Safety Report 6163204-6 (Version None)
Quarter: 2009Q2

REPORT INFORMATION
  Report Type: 
  Country: None (occurrence: None)
  Receive Date: 20090422
  Receipt Date: 20090417
  Transmission Date: 20091009
  Serious: Yes (Other)
  Sender: FDA-Public Use
  Company Number: US-ALLERGAN-0905365US

PATIENT

DRUGS (1)
  1. ZYMAR [Suspect]
     Indication: CONJUNCTIVITIS BACTERIAL

REACTIONS (1)
  - ELECTROCARDIOGRAM QT PROLONGED [None]
